FAERS Safety Report 13930300 (Version 27)
Quarter: 2021Q3

REPORT INFORMATION
  Report Type: Report from Study
  Country: CA (occurrence: CA)
  Receive Date: 20170901
  Receipt Date: 20210829
  Transmission Date: 20211014
  Serious: Yes (Hospitalization, Other)
  Sender: FDA-Public Use
  Company Number: PHHY2016CA076948

PATIENT
  Age: 70 Year
  Sex: Male

DRUGS (6)
  1. SANDOSTATIN LAR DEPOT [Suspect]
     Active Substance: OCTREOTIDE ACETATE
     Indication: CARCINOID TUMOUR
     Dosage: 30 MG, Q4W(EVERY 4 WEEKS)
     Route: 030
     Dates: start: 20160502
  2. SANDOSTATIN LAR DEPOT [Suspect]
     Active Substance: OCTREOTIDE ACETATE
  3. METOPROLOL. [Concomitant]
     Active Substance: METOPROLOL
     Dosage: UNK
     Route: 065
  4. SANDOSTATIN LAR DEPOT [Suspect]
     Active Substance: OCTREOTIDE ACETATE
  5. METOPROLOL. [Concomitant]
     Active Substance: METOPROLOL
     Indication: PRODUCT USED FOR UNKNOWN INDICATION
     Dosage: 10 MG, UNK
     Route: 048
     Dates: start: 201608
  6. METOPROLOL. [Concomitant]
     Active Substance: METOPROLOL
     Dosage: UNK
     Route: 065
     Dates: start: 20170928

REACTIONS (25)
  - Constipation [Recovered/Resolved]
  - Blood pressure increased [Unknown]
  - Pruritus [Unknown]
  - Abdominal distension [Unknown]
  - Constipation [Recovered/Resolved]
  - Erythema [Unknown]
  - Myocardial infarction [Unknown]
  - Epilepsy [Unknown]
  - Abdominal pain [Recovered/Resolved]
  - Diarrhoea [Unknown]
  - Intestinal obstruction [Recovered/Resolved]
  - Somnolence [Unknown]
  - Needle issue [Unknown]
  - Diarrhoea [Recovered/Resolved]
  - Flatulence [Unknown]
  - Asthenia [Unknown]
  - Loss of consciousness [Unknown]
  - Heart rate decreased [Unknown]
  - Metastases to liver [Unknown]
  - Abdominal pain upper [Unknown]
  - Influenza [Unknown]
  - Abdominal pain [Unknown]
  - Procedural pain [Not Recovered/Not Resolved]
  - Illness [Unknown]
  - Injection site pain [Unknown]

NARRATIVE: CASE EVENT DATE: 20160517
